FAERS Safety Report 6081449-0 (Version None)
Quarter: 2009Q1

REPORT INFORMATION
  Report Type: 
  Country: None (occurrence: None)
  Receive Date: 20090213
  Receipt Date: 20090204
  Transmission Date: 20090719
  Serious: Yes (Hospitalization)
  Sender: FDA-Public Use
  Company Number: CIP09000325

PATIENT
  Age: 24 Year
  Sex: Male

DRUGS (2)
  1. ASACOL [Suspect]
     Indication: COLITIS ULCERATIVE
  2. AZATHIOPRINE [Suspect]
     Indication: COLITIS ULCERATIVE

REACTIONS (4)
  - DRUG INTERACTION [None]
  - GRANULOCYTE COUNT DECREASED [None]
  - LEUKOPENIA [None]
  - PYREXIA [None]
